FAERS Safety Report 5283282-6 (Version None)
Quarter: 2007Q2

REPORT INFORMATION
  Report Type: 
  Country: None (occurrence: None)
  Receive Date: 20070402
  Receipt Date: 20070327
  Transmission Date: 20071010
  Serious: Yes (Hospitalization)
  Sender: FDA-Public Use
  Company Number: 2007UW06136

PATIENT
  Age: 49 Year
  Sex: Female

DRUGS (1)
  1. FASLODEX [Suspect]
     Indication: INFLAMMATORY CARCINOMA OF BREAST STAGE IV
     Route: 030
     Dates: start: 20070201

REACTIONS (1)
  - BONE MARROW FAILURE [None]
